FAERS Safety Report 22516933 (Version 1)
Quarter: 2023Q2

REPORT INFORMATION
  Report Type: Spontaneous
  Country: IT (occurrence: IT)
  Receive Date: 20230603
  Receipt Date: 20230603
  Transmission Date: 20230721
  Serious: Yes (Other)
  Sender: FDA-Public Use
  Company Number: IT-STRIDES ARCOLAB LIMITED-2023SP008894

PATIENT
  Age: 60 Year
  Sex: Male

DRUGS (10)
  1. DEXAMETHASONE [Suspect]
     Active Substance: DEXAMETHASONE
     Indication: T-cell type acute leukaemia
     Dosage: UNK, CYCLICAL; HYPER-CVAD REGIMEN; FOR 2 CYCLES
     Route: 065
  2. PREDNISOLONE [Suspect]
     Active Substance: PREDNISOLONE
     Indication: T-cell type acute leukaemia
     Dosage: UNK
     Route: 065
  3. DOXORUBICIN [Suspect]
     Active Substance: DOXORUBICIN
     Indication: T-cell type acute leukaemia
     Dosage: UNK, CYCLICAL; HYPER-CVAD REGIMEN; FOR 2 CYCLES
     Route: 065
  4. METHOTREXATE [Suspect]
     Active Substance: METHOTREXATE
     Indication: T-cell type acute leukaemia
     Dosage: UNK, CYCLICAL; HYPER-CVAD REGIMEN; FOR 2 CYCLES
     Route: 065
  5. CYCLOPHOSPHAMIDE [Suspect]
     Active Substance: CYCLOPHOSPHAMIDE
     Indication: T-cell type acute leukaemia
     Dosage: UNK, CYCLICAL; HYPER-CVAD REGIMEN; FOR 2 CYCLES
     Route: 065
  6. VINCRISTINE [Suspect]
     Active Substance: VINCRISTINE
     Indication: T-cell type acute leukaemia
     Dosage: UNK, CYCLICAL; HYPER-CVAD REGIMEN; FOR 2 CYCLES
     Route: 065
  7. CYTARABINE [Suspect]
     Active Substance: CYTARABINE
     Indication: T-cell type acute leukaemia
     Dosage: UNK, CYCLICAL; HYPER-CVAD REGIMEN; FOR 2 CYCLES
     Route: 065
  8. PONATINIB [Suspect]
     Active Substance: PONATINIB
     Indication: T-cell type acute leukaemia
     Dosage: 45 MILLIGRAM; PER DAY
     Route: 065
  9. PONATINIB [Suspect]
     Active Substance: PONATINIB
     Dosage: 30 MILLIGRAM; PER DAY
     Route: 065
  10. PONATINIB [Suspect]
     Active Substance: PONATINIB
     Dosage: 15 MILLIGRAM; PER DAY
     Route: 065

REACTIONS (2)
  - Febrile neutropenia [Unknown]
  - Pneumonia fungal [Unknown]
